FAERS Safety Report 6299556-6 (Version None)
Quarter: 2009Q3

REPORT INFORMATION
  Report Type: 
  Country: None (occurrence: None)
  Receive Date: 20090805
  Receipt Date: 20090805
  Transmission Date: 20100115
  Serious: Yes (Other)
  Sender: FDA-Public Use
  Company Number: None

PATIENT
  Sex: Male
  Weight: 150 kg

DRUGS (2)
  1. EPOETIN ALFA 20,000 UNITS/ML AMGEN [Suspect]
     Indication: ANAEMIA OF CHRONIC DISEASE
     Dosage: 3000 UNITS WEEKLY SQ
     Dates: start: 20070515, end: 20090804
  2. EPOETIN ALFA 20,000 UNITS/ML AMGEN [Suspect]
     Indication: RENAL FAILURE CHRONIC
     Dosage: 3000 UNITS WEEKLY SQ
     Dates: start: 20070515, end: 20090804

REACTIONS (3)
  - ANXIETY [None]
  - DRUG HYPERSENSITIVITY [None]
  - NAUSEA [None]
